FAERS Safety Report 16356912 (Version 1)
Quarter: 2019Q2

REPORT INFORMATION
  Report Type: Spontaneous
  Country: IT (occurrence: IT)
  Receive Date: 20190527
  Receipt Date: 20190527
  Transmission Date: 20190711
  Serious: Yes (Other)
  Sender: FDA-Public Use
  Company Number: IT-ASTELLAS-2019US021974

PATIENT
  Sex: Female

DRUGS (19)
  1. SIROLIMUS. [Suspect]
     Active Substance: SIROLIMUS
     Indication: HEPATITIS
  2. PREDNISONE. [Suspect]
     Active Substance: PREDNISONE
     Indication: IMMUNOSUPPRESSANT DRUG THERAPY
     Route: 065
  3. CYCLOPHOSPHAMIDE. [Suspect]
     Active Substance: CYCLOPHOSPHAMIDE
     Indication: AUTOIMMUNE HAEMOLYTIC ANAEMIA
  4. AZATHIOPRINE. [Suspect]
     Active Substance: AZATHIOPRINE
     Indication: IMMUNOSUPPRESSANT DRUG THERAPY
     Dosage: UNK, UNKNOWN FREQ.
     Route: 065
  5. AZATHIOPRINE. [Suspect]
     Active Substance: AZATHIOPRINE
     Indication: HEPATITIS
  6. RITUXIMAB. [Suspect]
     Active Substance: RITUXIMAB
     Indication: HEPATITIS
     Dosage: 375 MG/M2, ONCE WEEKLY (4 DOSE 375 MG/M2, QW)
     Route: 065
  7. CYCLOSPORINE. [Suspect]
     Active Substance: CYCLOSPORINE
     Indication: IMMUNOSUPPRESSANT DRUG THERAPY
  8. SIROLIMUS. [Suspect]
     Active Substance: SIROLIMUS
     Indication: AUTOIMMUNE HAEMOLYTIC ANAEMIA
     Dosage: UNK UNK, UNKNOWN FREQ.
     Route: 065
  9. PREDNISONE. [Suspect]
     Active Substance: PREDNISONE
     Indication: AUTOIMMUNE HAEMOLYTIC ANAEMIA
  10. CYCLOSPORINE. [Suspect]
     Active Substance: CYCLOSPORINE
     Indication: HEPATITIS
     Route: 065
  11. TACROLIMUS. [Suspect]
     Active Substance: TACROLIMUS
     Indication: HEPATITIS
     Dosage: UNK UNK, UNKNOWN FREQ.
     Route: 065
  12. TACROLIMUS. [Suspect]
     Active Substance: TACROLIMUS
     Indication: AUTOIMMUNE HAEMOLYTIC ANAEMIA
  13. PREDNISONE. [Suspect]
     Active Substance: PREDNISONE
     Indication: HEPATITIS
     Dosage: UNK UNK, UNKNOWN FREQ.
     Route: 065
  14. AZATHIOPRINE. [Suspect]
     Active Substance: AZATHIOPRINE
     Indication: AUTOIMMUNE HAEMOLYTIC ANAEMIA
     Route: 065
  15. RITUXIMAB. [Suspect]
     Active Substance: RITUXIMAB
     Indication: AUTOIMMUNE HAEMOLYTIC ANAEMIA
  16. CYCLOSPORINE. [Suspect]
     Active Substance: CYCLOSPORINE
     Indication: AUTOIMMUNE HAEMOLYTIC ANAEMIA
  17. CYCLOPHOSPHAMIDE. [Suspect]
     Active Substance: CYCLOPHOSPHAMIDE
     Indication: IMMUNOSUPPRESSANT DRUG THERAPY
  18. CYCLOPHOSPHAMIDE. [Suspect]
     Active Substance: CYCLOPHOSPHAMIDE
     Indication: HEPATITIS
     Dosage: UNK, UNKNOWN FREQ.
     Route: 065
  19. RITUXIMAB. [Suspect]
     Active Substance: RITUXIMAB
     Indication: IMMUNOSUPPRESSANT DRUG THERAPY
     Dosage: 375 MG/M2, ONCE WEEKLY (2 DOSE 375 MG/M2, QW)
     Route: 065

REACTIONS (5)
  - Hepatitis [Recovered/Resolved]
  - Autoimmune haemolytic anaemia [Recovered/Resolved]
  - Product use in unapproved indication [Unknown]
  - Therapeutic response decreased [Unknown]
  - Disease recurrence [Recovered/Resolved]
